FAERS Safety Report 24359503 (Version 3)
Quarter: 2025Q2

REPORT INFORMATION
  Report Type: Spontaneous
  Country: US (occurrence: US)
  Receive Date: 20240924
  Receipt Date: 20250618
  Transmission Date: 20250717
  Serious: No
  Sender: SANOFI AVENTIS
  Company Number: US-SA-2024SA270963

PATIENT
  Age: 63 Year
  Sex: Female

DRUGS (1)
  1. DUPIXENT [Suspect]
     Active Substance: DUPILUMAB
     Dosage: 300 MG, QOW
     Route: 058

REACTIONS (7)
  - Malaise [Unknown]
  - Asthma [Unknown]
  - Dyspnoea [Unknown]
  - Respiration abnormal [Unknown]
  - Vomiting [Recovering/Resolving]
  - Therapeutic response shortened [Unknown]
  - Dry eye [Unknown]
